FAERS Safety Report 25313663 (Version 3)
Quarter: 2025Q3

REPORT INFORMATION
  Report Type: Report from Study
  Country: US (occurrence: US)
  Receive Date: 20250514
  Receipt Date: 20250814
  Transmission Date: 20251020
  Serious: No
  Sender: DECIPHERA PHARMACEUTICALS
  Company Number: US-DECIPHERA PHARMACEUTICALS LLC-2025US000432

PATIENT
  Age: 42 Year
  Sex: Female

DRUGS (2)
  1. ROMVIMZA [Suspect]
     Active Substance: VIMSELTINIB
     Indication: Connective tissue neoplasm
     Dosage: 30 MILLIGRAM, TWICE WEEKLY
     Route: 048
     Dates: start: 20250411, end: 202504
  2. ROMVIMZA [Suspect]
     Active Substance: VIMSELTINIB
     Indication: Soft tissue sarcoma
     Dosage: 20 MILLIGRAM, TWICE WEEKLY
     Route: 048
     Dates: start: 20250420, end: 2025

REACTIONS (8)
  - Brain fog [Recovering/Resolving]
  - Loss of personal independence in daily activities [Recovering/Resolving]
  - Psoriasis [Unknown]
  - Fatigue [Recovering/Resolving]
  - Rash pruritic [Not Recovered/Not Resolved]
  - Periorbital oedema [Recovering/Resolving]
  - Blood cholesterol increased [Unknown]
  - Blood creatine phosphokinase increased [Unknown]

NARRATIVE: CASE EVENT DATE: 20250101
